FAERS Safety Report 10076965 (Version 1)
Quarter: 2014Q2

REPORT INFORMATION
  Report Type: Spontaneous
  Country: CH (occurrence: CH)
  Receive Date: 20140414
  Receipt Date: 20140414
  Transmission Date: 20141212
  Serious: Yes (Other)
  Sender: FDA-Public Use
  Company Number: CH-ELI_LILLY_AND_COMPANY-CH201404001085

PATIENT
  Age: 24 Year
  Sex: Female

DRUGS (5)
  1. FLUCTINE [Suspect]
     Indication: DECREASED APPETITE
     Dosage: 40 MG, QD
     Route: 048
  2. TOPAMAX [Suspect]
     Indication: DECREASED APPETITE
     Dosage: 200 MG, QD
     Route: 048
  3. ANXIOLIT [Suspect]
     Indication: PRODUCT USED FOR UNKNOWN INDICATION
     Dosage: 100 MG, QD
     Route: 048
  4. TRAMAL [Suspect]
     Indication: SYRINGOMYELIA
     Dosage: 100 MG, QD
     Route: 048
  5. ZALDIAR [Suspect]
     Indication: SYRINGOMYELIA
     Dosage: 37.5/325 MG QD
     Route: 048

REACTIONS (1)
  - Exposure during pregnancy [Unknown]
